FAERS Safety Report 9879222 (Version 2)
Quarter: 2014Q1

REPORT INFORMATION
  Report Type: Spontaneous
  Country: US (occurrence: US)
  Receive Date: 20140206
  Receipt Date: 20140206
  Transmission Date: 20141002
  Serious: No
  Sender: FDA-Public Use
  Company Number: US-ALLERGAN-1313723US

PATIENT
  Sex: Female

DRUGS (10)
  1. BOTOX COSMETIC [Suspect]
     Indication: SKIN WRINKLING
     Dosage: 4 UNK, UNK
     Route: 030
     Dates: start: 20130817, end: 20130817
  2. BOTOX COSMETIC [Suspect]
     Indication: SKIN WRINKLING
     Dosage: 4 UNITS, SINGLE
     Route: 030
     Dates: start: 20130817, end: 20130817
  3. BOTOX COSMETIC [Suspect]
     Indication: SKIN WRINKLING
     Dosage: 8 UNK, UNK
     Route: 030
     Dates: start: 20130817, end: 20130817
  4. BOTOX COSMETIC [Suspect]
     Indication: SKIN WRINKLING
     Dosage: 24 UNITS, SINGLE
     Route: 030
     Dates: start: 20130809, end: 20130809
  5. BOTOX COSMETIC [Suspect]
     Dosage: 12 UNITS, SINGLE
     Route: 030
     Dates: start: 20130809, end: 20130809
  6. BOTOX COSMETIC [Suspect]
     Dosage: 12 UNK, UNK
     Route: 030
     Dates: start: 20130809, end: 20130809
  7. BOTOX COSMETIC [Suspect]
     Dosage: 12 UNK, UNK
     Route: 030
     Dates: start: 20130809, end: 20130809
  8. BOTOX COSMETIC [Suspect]
     Dosage: 4 UNK, UNK
     Route: 030
     Dates: start: 20130809, end: 20130809
  9. VITAMINS NOS [Concomitant]
     Indication: VITAMIN SUPPLEMENTATION
     Dosage: UNK
  10. CALCIUM [Concomitant]
     Indication: MINERAL SUPPLEMENTATION
     Dosage: UNK
     Route: 048

REACTIONS (4)
  - Off label use [Unknown]
  - Off label use [Unknown]
  - Therapeutic response decreased [Unknown]
  - Therapeutic response decreased [Unknown]
